FAERS Safety Report 9670478 (Version 2)
Quarter: 2013Q4

REPORT INFORMATION
  Report Type: Report from Study
  Country: US (occurrence: US)
  Receive Date: 20131106
  Receipt Date: 20131106
  Transmission Date: 20140711
  Serious: Yes (Other)
  Sender: FDA-Public Use
  Company Number: US-ROCHE-1263191

PATIENT
  Sex: Male

DRUGS (13)
  1. LUCENTIS [Suspect]
     Indication: DIABETIC RETINAL OEDEMA
     Dosage: DATE OF MOST RECENT DOSE: 21/OCT/2013
     Route: 050
  2. GABAPENTIN [Concomitant]
     Route: 048
  3. HCTZ [Concomitant]
     Route: 048
  4. INSULIN ASPART [Concomitant]
     Route: 058
  5. INSULIN GLARGINE [Concomitant]
     Route: 058
  6. LISINOPRIL [Concomitant]
     Route: 048
  7. METFORMIN HYDROCHLORIDE [Concomitant]
     Route: 048
  8. LOVASTATIN [Concomitant]
     Route: 048
  9. METOPROLOL TARTRATE [Concomitant]
     Route: 048
  10. NIACIN [Concomitant]
     Route: 048
  11. ERYTHROMYCIN [Concomitant]
     Dosage: INSTALL 1 INCH INTO THE RIGHT EYE 4X DAILY
     Route: 047
  12. ASPIRIN [Concomitant]
     Route: 048
  13. PAROXETINE HCL [Concomitant]
     Route: 048

REACTIONS (6)
  - Cystoid macular oedema [Unknown]
  - Retinal haemorrhage [Unknown]
  - Localised infection [Not Recovered/Not Resolved]
  - Retinal exudates [Unknown]
  - Vitreous haemorrhage [Recovering/Resolving]
  - Hyalosis asteroid [Unknown]
